FAERS Safety Report 21777579 (Version 1)
Quarter: 2022Q4

REPORT INFORMATION
  Report Type: Spontaneous
  Country: US (occurrence: US)
  Receive Date: 20221226
  Receipt Date: 20221226
  Transmission Date: 20230113
  Serious: No
  Sender: FDA-Public Use
  Company Number: US-MIGRATION_PFIZER-2022BHV002896

PATIENT

DRUGS (7)
  1. NURTEC ODT [Suspect]
     Active Substance: RIMEGEPANT SULFATE
     Indication: Migraine
     Route: 065
  2. NURTEC ODT [Suspect]
     Active Substance: RIMEGEPANT SULFATE
     Indication: Headache
     Route: 065
  3. NURTEC ODT [Suspect]
     Active Substance: RIMEGEPANT SULFATE
     Route: 065
  4. DIHYDROERGOTAMINE MESYLATE [Concomitant]
     Active Substance: DIHYDROERGOTAMINE MESYLATE
     Indication: Product used for unknown indication
     Route: 065
  5. EMGALITY [Concomitant]
     Active Substance: GALCANEZUMAB-GNLM
     Indication: Product used for unknown indication
     Dosage: SHOTS
     Route: 065
  6. COVID-19 vaccine [Concomitant]
     Indication: COVID-19 prophylaxis
     Route: 065
  7. Swine flu shot [Concomitant]
     Indication: Antiviral prophylaxis
     Dosage: SHOT
     Route: 065

REACTIONS (5)
  - Anger [Unknown]
  - Illness [Unknown]
  - Vomiting [Unknown]
  - Dehydration [Unknown]
  - Drug ineffective [Unknown]
